FAERS Safety Report 4502987-5 (Version None)
Quarter: 2004Q4

REPORT INFORMATION
  Report Type: 
  Country: None (occurrence: None)
  Receive Date: 20041112
  Receipt Date: 20041101
  Transmission Date: 20050328
  Serious: Yes (Other)
  Sender: FDA-Public Use
  Company Number: HQWYE207703NOV04

PATIENT
  Age: 53 Year
  Sex: Female
  Weight: 61.29 kg

DRUGS (6)
  1. PREMPRO (CONJUGATED ESTROGENS) [Suspect]
     Indication: HORMONE REPLACEMENT THERAPY
     Dosage: 1 TABLET 1X PER 1 DAY, ORAL
     Route: 048
     Dates: start: 20041001
  2. WELLBUTRIN XL (BUPROPION HYDROCHLORIDE) [Concomitant]
  3. LORTAB [Concomitant]
  4. AMBIEN [Concomitant]
  5. XANAX [Concomitant]
  6. DILTIAZEM HYDROCHLORIDE [Concomitant]

REACTIONS (4)
  - CRYING [None]
  - DRUG INEFFECTIVE [None]
  - MOOD SWINGS [None]
  - SUICIDAL IDEATION [None]
